FAERS Safety Report 6436975-9 (Version None)
Quarter: 2009Q4

REPORT INFORMATION
  Report Type: 
  Country: None (occurrence: None)
  Receive Date: 20091112
  Receipt Date: 20091104
  Transmission Date: 20100525
  Serious: Yes (Hospitalization, Other)
  Sender: FDA-Public Use
  Company Number: US-BIOGENIDEC-2006BI008961

PATIENT
  Age: 58 Year
  Sex: Female

DRUGS (2)
  1. AVONEX [Suspect]
     Indication: MULTIPLE SCLEROSIS
     Route: 030
     Dates: start: 20040930, end: 20060417
  2. AVONEX [Suspect]
     Route: 030
     Dates: start: 20060515

REACTIONS (8)
  - ESCHERICHIA INFECTION [None]
  - ESCHERICHIA SEPSIS [None]
  - IMMUNE SYSTEM DISORDER [None]
  - MULTIPLE SCLEROSIS [None]
  - PYELONEPHRITIS ACUTE [None]
  - RENAL FAILURE CHRONIC [None]
  - RENAL IMPAIRMENT [None]
  - RENAL PAIN [None]
